FAERS Safety Report 17485429 (Version 1)
Quarter: 2020Q1

REPORT INFORMATION
  Report Type: Report from Study
  Country: FR (occurrence: FR)
  Receive Date: 20200302
  Receipt Date: 20200302
  Transmission Date: 20200409
  Serious: Yes (Hospitalization)
  Sender: FDA-Public Use
  Company Number: FR-CELLTRION INC.-2020FR019869

PATIENT

DRUGS (1)
  1. TRUXIMA [Suspect]
     Active Substance: RITUXIMAB-ABBS
     Indication: DIFFUSE LARGE B-CELL LYMPHOMA

REACTIONS (1)
  - Intervertebral discitis [Recovered/Resolved]

NARRATIVE: CASE EVENT DATE: 20190425
